FAERS Safety Report 7240238-1 (Version None)
Quarter: 2011Q1

REPORT INFORMATION
  Report Type: 
  Country: None (occurrence: None)
  Receive Date: 20110124
  Receipt Date: 20110124
  Transmission Date: 20110831
  Serious: Yes (Hospitalization)
  Sender: FDA-Public Use
  Company Number: US-PFIZER INC-2006022109

PATIENT
  Sex: Female
  Weight: 87.1 kg

DRUGS (9)
  1. FOSAMAX [Concomitant]
     Route: 048
     Dates: start: 20010101
  2. SUNITINIB MALATE [Suspect]
     Indication: RENAL CELL CARCINOMA
     Dosage: 50 MG, 1X/DAY
     Route: 048
     Dates: start: 20060118, end: 20060214
  3. LESCOL [Concomitant]
     Route: 048
     Dates: start: 19960101
  4. RITALIN [Concomitant]
     Indication: FATIGUE
     Route: 048
     Dates: start: 20051218, end: 20060203
  5. MAALOX [Concomitant]
     Indication: DYSPEPSIA
     Route: 048
     Dates: start: 20030101
  6. NEXIUM [Concomitant]
     Indication: DYSPEPSIA
     Route: 048
     Dates: start: 20060203
  7. ACETAMINOPHEN [Concomitant]
     Route: 048
     Dates: start: 19850101
  8. ALEVE [Concomitant]
     Route: 048
     Dates: start: 19900101
  9. PROVIGIL [Concomitant]
     Route: 048
     Dates: start: 20060203

REACTIONS (1)
  - CHEST PAIN [None]
